FAERS Safety Report 14797318 (Version 2)
Quarter: 2018Q2

REPORT INFORMATION
  Report Type: Spontaneous
  Country: DE (occurrence: DE)
  Receive Date: 20180424
  Receipt Date: 20180510
  Transmission Date: 20180711
  Serious: Yes (Hospitalization, Other)
  Sender: FDA-Public Use
  Company Number: DE-AMGEN-DEUSP2018052916

PATIENT
  Age: 77 Year
  Sex: Male
  Weight: 85 kg

DRUGS (2)
  1. KYPROLIS [Suspect]
     Active Substance: CARFILZOMIB
     Indication: PLASMA CELL MYELOMA
     Dosage: 20 MG/M2, (4 MG), DAY 1, 2, 8, 9, 15 AND 16 / 4 WEEK CYCLE
     Route: 042
     Dates: start: 20170918
  2. KYPROLIS [Suspect]
     Active Substance: CARFILZOMIB
     Dosage: 56 MG/M2, (4, 8 MG), DAY 1, 2, 8, 9, 15 AND 16 / 4 WEEK CYCLE
     Route: 042
     Dates: end: 20180405

REACTIONS (3)
  - Sepsis [Unknown]
  - Atrial flutter [Recovered/Resolved]
  - Epididymitis [Unknown]

NARRATIVE: CASE EVENT DATE: 201709
